FAERS Safety Report 8843449 (Version 1)
Quarter: 2012Q4

REPORT INFORMATION
  Report Type: 
  Country: US (occurrence: US)
  Receive Date: 20121016
  Receipt Date: 20121016
  Transmission Date: 20130627
  Serious: Yes (Other)
  Sender: FDA-Public Use
  Company Number: US-ROCHE-1138874

PATIENT
  Sex: Male

DRUGS (4)
  1. NUTROPIN [Suspect]
     Indication: RENAL DISORDER
     Route: 058
  2. NUTROPIN [Suspect]
     Indication: URETERAL DISORDER
  3. IMURAN [Concomitant]
  4. PROGRAF [Concomitant]

REACTIONS (1)
  - Ill-defined disorder [Unknown]
